FAERS Safety Report 9757567 (Version 2)
Quarter: 2014Q2

REPORT INFORMATION
  Report Type: Spontaneous
  Country: US (occurrence: US)
  Receive Date: 20131216
  Receipt Date: 20140606
  Transmission Date: 20141212
  Serious: Yes (Death)
  Sender: FDA-Public Use
  Company Number: US-JNJFOC-20131207565

PATIENT
  Sex: 0
  Weight: 54.43 kg

DRUGS (6)
  1. EXTRA STRENGTH TYLENOL [Suspect]
     Route: 065
  2. EXTRA STRENGTH TYLENOL [Suspect]
     Indication: PAIN
     Route: 065
     Dates: start: 2002, end: 2005
  3. REGULAR STRENGTH TYLENOL [Suspect]
     Route: 065
  4. REGULAR STRENGTH TYLENOL [Suspect]
     Indication: PRODUCT USED FOR UNKNOWN INDICATION
     Route: 065
  5. EXTRA STRENGTH TYLENOL RAPID RELEASE GELS [Suspect]
     Route: 065
  6. EXTRA STRENGTH TYLENOL RAPID RELEASE GELS [Suspect]
     Indication: PAIN
     Route: 065
     Dates: start: 2002, end: 2005

REACTIONS (2)
  - Hepatic failure [Fatal]
  - Toxicity to various agents [Fatal]
